FAERS Safety Report 8342316 (Version 2)
Quarter: 2013Q1

REPORT INFORMATION
  Report Type: Spontaneous
  Country: US (occurrence: None)
  Receive Date: 20111207
  Receipt Date: 20130109
  Transmission Date: 20140127
  Serious: Yes (Death, Hospitalization, Other)
  Sender: FDA-Public Use
  Company Number: AUR-APL-2011-01329

PATIENT
  Age: 71 Year
  Sex: Female

DRUGS (23)
  1. GLIBENCLAMIDE [Suspect]
     Indication: TYPE 2 DIABETES MELLITUS
     Dosage: 5 MG
  2. METFORMIN HYDROCHLORIDE [Suspect]
     Indication: TYPE 2 DIABETES MELLITUS
     Dosage: 1000 MG
  3. UNSPECIFIED INGREDIENT [Suspect]
     Indication: TYPE 2 DIABETES MELLITUS
     Dates: start: 20100930
  4. ACETYLSALICYLIC ACID (ACETYLSALICYLIC ACID) [Concomitant]
  5. EZETIMIBE [Concomitant]
  6. CLONIDINE (CLONIDINE) [Concomitant]
  7. COLACE (DOCUSATE SODIUM) [Concomitant]
  8. FEXOFENADINE [Suspect]
  9. GLYBURIDE (GLIBENCLAMIDE) [Concomitant]
  10. IMDUR (ISOSORBIDE MONONITRATE) [Concomitant]
  11. LASIX (FUROSEMIDE) [Concomitant]
  12. LEVOXYL (LEVOTHYROXINE SODIUM) [Concomitant]
  13. LIPITOR (ATORVASTATIN CALCIUM) [Concomitant]
  14. LOPRESSOR (METOPROLOL TARTRATE) [Concomitant]
  15. PLAVIX (CLOPIDOGREL) [Concomitant]
  16. POTASSIUM CHLORIDE (POTASSIUM CHLORIDE) [Concomitant]
  17. PRILOSEC [Concomitant]
  18. TEMAZEPAM (TEMAZEPAM) [Concomitant]
  19. TRICOR (ADENOSINE) [Concomitant]
  20. ZANTAC (RANITIDINE) [Concomitant]
  21. ADVAIR (SERETIDE) [Concomitant]
  22. LISINOPRIL (LISINOPRIL) [Concomitant]
  23. METFORMIN (METFORMIN) [Concomitant]

REACTIONS (4)
  - Hypoglycaemia [None]
  - Hyperhidrosis [None]
  - Asthenia [None]
  - Confusional state [None]
